FAERS Safety Report 9728507 (Version 1)
Quarter: 2013Q4

REPORT INFORMATION
  Report Type: Spontaneous
  Country: US (occurrence: None)
  Receive Date: 20131202
  Receipt Date: 20131202
  Transmission Date: 20140711
  Serious: Yes (Life-Threatening)
  Sender: FDA-Public Use
  Company Number: 20130681

PATIENT
  Age: 55 Year
  Sex: Male

DRUGS (3)
  1. ADENOSINE [Suspect]
     Indication: CARDIAC STRESS TEST
     Route: 042
  2. SALBUTAMOL [Concomitant]
  3. BECLOMETASONE [Concomitant]

REACTIONS (4)
  - Bronchospasm [None]
  - Off label use [None]
  - Malaise [None]
  - Loss of consciousness [None]
